FAERS Safety Report 8566847 (Version 3)
Quarter: 2012Q4

REPORT INFORMATION
  Report Type: Spontaneous
  Country: DK (occurrence: None)
  Receive Date: 20120514
  Receipt Date: 20120830
  Transmission Date: 20130627
  Serious: Yes (Other)
  Sender: FDA-Public Use
  Company Number: 2012MA005980

PATIENT
  Age: 53 Year
  Sex: Female

DRUGS (2)
  1. GEMCITABINE HYDROCHLORIDE [Suspect]
     Indication: BREAST CANCER METASTATIC
     Dosage: 1800 MG; DAY1; IV
     Route: 042
     Dates: start: 20120203
  2. ONDANSETRON [Concomitant]

REACTIONS (2)
  - DIZZINESS [None]
  - INAPPROPRIATE AFFECT [None]
